FAERS Safety Report 5444260-7 (Version None)
Quarter: 2007Q3

REPORT INFORMATION
  Report Type: 
  Country: None (occurrence: None)
  Receive Date: 20070904
  Receipt Date: 20070904
  Transmission Date: 20080115
  Serious: Yes (Other)
  Sender: FDA-Public Use
  Company Number: None

PATIENT
  Age: 70 Year
  Sex: Male
  Weight: 84.369 kg

DRUGS (1)
  1. SUPHEDRINE 30MG EQUATE [Suspect]
     Indication: NASAL CONGESTION
     Dosage: 30MG EVERY 4-6 HRS. PO
     Route: 048
     Dates: start: 20070701, end: 20070803

REACTIONS (2)
  - INSOMNIA [None]
  - NERVOUSNESS [None]
